FAERS Safety Report 17939913 (Version 2)
Quarter: 2020Q3

REPORT INFORMATION
  Report Type: Report from Study
  Country: US (occurrence: US)
  Receive Date: 20200624
  Receipt Date: 20200713
  Transmission Date: 20201103
  Serious: Yes (Other)
  Sender: FDA-Public Use
  Company Number: US-JNJFOC-20200623685

PATIENT
  Age: 27 Year
  Sex: Female
  Weight: 79.9 kg

DRUGS (1)
  1. INFLIXIMAB, RECOMBINANT [Suspect]
     Active Substance: INFLIXIMAB
     Indication: INFLAMMATORY BOWEL DISEASE
     Route: 042
     Dates: start: 20080422

REACTIONS (2)
  - Abortion spontaneous [Recovered/Resolved]
  - Drug exposure before pregnancy [Recovered/Resolved]

NARRATIVE: CASE EVENT DATE: 202002
